FAERS Safety Report 9970556 (Version 1)
Quarter: 2014Q1

REPORT INFORMATION
  Report Type: Spontaneous
  Country: US (occurrence: None)
  Receive Date: 20140304
  Receipt Date: 20140304
  Transmission Date: 20141002
  Serious: Yes (Other)
  Sender: FDA-Public Use
  Company Number: 2013-US-004336

PATIENT
  Age: 31 Year
  Sex: Female

DRUGS (15)
  1. XYREM (SODIUM OXYBATE) ORAL SOLUTION, 500MG/ML [Suspect]
     Indication: NARCOLEPSY
  2. ADDERALL [Suspect]
  3. B6 (PYRIDOXINE HYDROCHLORIDE) [Concomitant]
  4. VITAMIN D (COLESCALCIFEROL) [Concomitant]
  5. CALCIUM (CALCIUM GLUCONATE) [Concomitant]
  6. FOLIC ACID (FOLIC ACID) [Concomitant]
  7. B12 (CYANOCOBALAMIN) [Concomitant]
  8. METOPROLOL (METOPROLOL SUCCINATE) [Concomitant]
  9. ELMIRON (PENTOSAN POLYSULFATE SODIUM) [Concomitant]
  10. DIAMOX (ACETAZOLAMIDE SODIUM) [Concomitant]
  11. NEOMYCIN SULFATE (NEOMYCIN SULFATE) [Concomitant]
  12. ZOFRAN (ONDANSETRON HYDROHCLORIDE) [Concomitant]
  13. SINGULAIR (MONTELUKAST SODUIM) [Concomitant]
  14. QVAR (BECLOMETASONE DIPROPIONATE) [Concomitant]
  15. ALEVE (NAPROXEN SODIUM) [Concomitant]

REACTIONS (1)
  - Cardiac disorder [None]
